FAERS Safety Report 21291519 (Version 1)
Quarter: 2022Q3

REPORT INFORMATION
  Report Type: Spontaneous
  Country: US (occurrence: US)
  Receive Date: 20220903
  Receipt Date: 20220903
  Transmission Date: 20221027
  Serious: No
  Sender: FDA-Public Use
  Company Number: US-TEVA-2022-US-2068266

PATIENT
  Age: 48 Year
  Sex: Male

DRUGS (1)
  1. EPINEPHRINE [Suspect]
     Active Substance: EPINEPHRINE
     Indication: Allergy to arthropod sting
     Dosage: STRENGTH: 0.3 MG / 0.3 ML
     Route: 065

REACTIONS (5)
  - Injury associated with device [Unknown]
  - Injection site haemorrhage [Unknown]
  - Needle issue [Unknown]
  - Needle issue [Unknown]
  - Expired product administered [Unknown]

NARRATIVE: CASE EVENT DATE: 20220820
